FAERS Safety Report 8173443-0 (Version None)
Quarter: 2012Q1

REPORT INFORMATION
  Report Type: 
  Country: None (occurrence: None)
  Receive Date: 20120104
  Receipt Date: 20111205
  Transmission Date: 20120608
  Serious: No
  Sender: FDA-Public Use
  Company Number: 2011HGS-002916

PATIENT
  Age: 54 Year
  Sex: Female

DRUGS (11)
  1. COREG (CARVEDILOL) (CARVEDILOL) [Concomitant]
  2. ENALAPRIL MALEATE [Concomitant]
  3. PRILOSEC (OMEPRAZOLE) (OMEPRAZOLE) [Concomitant]
  4. BENLYSTA [Suspect]
     Indication: SYSTEMIC LUPUS ERYTHEMATOSUS
     Dosage: 1 IN 28 D, INTRAVENOUS DRIP
     Route: 041
     Dates: start: 20110805
  5. IMURAN [Concomitant]
  6. PREDNISONE [Concomitant]
  7. VITAMIN D (ERGOCALCIFEROL) (ERGOCALCIFEROL) [Concomitant]
  8. CLONIDINE [Concomitant]
  9. XANAX [Concomitant]
  10. ZOCOR [Concomitant]
  11. ASPIRIN [Concomitant]

REACTIONS (1)
  - SINUSITIS [None]
